FAERS Safety Report 16772893 (Version 1)
Quarter: 2019Q3

REPORT INFORMATION
  Report Type: Spontaneous
  Country: US (occurrence: US)
  Receive Date: 20190715
  Receipt Date: 20190715
  Transmission Date: 20191005
  Serious: Yes (Hospitalization)
  Sender: FDA-Public Use
  Company Number: None

PATIENT
  Age: 57 Year

DRUGS (1)
  1. DALFAMPRIDINE 10MG [Suspect]
     Active Substance: DALFAMPRIDINE
     Route: 048

REACTIONS (2)
  - Rotator cuff syndrome [None]
  - Rotator cuff repair [None]

NARRATIVE: CASE EVENT DATE: 20190516
